FAERS Safety Report 20031470 (Version 1)
Quarter: 2021Q4

REPORT INFORMATION
  Report Type: Spontaneous
  Country: GB (occurrence: GB)
  Receive Date: 20211103
  Receipt Date: 20211103
  Transmission Date: 20220303
  Serious: Yes (Hospitalization, Other)
  Sender: FDA-Public Use
  Company Number: GB-ABBVIE-21K-167-4138261-00

PATIENT
  Age: 52 Year
  Sex: Male

DRUGS (4)
  1. VALPROATE SODIUM [Suspect]
     Active Substance: VALPROATE SODIUM
     Indication: Schizophrenia
     Route: 065
  2. CLOZAPINE [Suspect]
     Active Substance: CLOZAPINE
     Indication: Schizophrenia
     Route: 065
  3. AMISULPRIDE [Suspect]
     Active Substance: AMISULPRIDE
     Indication: Schizophrenia
     Route: 065
  4. AMISULPRIDE [Suspect]
     Active Substance: AMISULPRIDE
     Dosage: DOSE INCREASED
     Route: 065

REACTIONS (19)
  - Pickwickian syndrome [Unknown]
  - Sleep apnoea syndrome [Unknown]
  - Pericarditis [Recovering/Resolving]
  - Pericardial effusion [Not Recovered/Not Resolved]
  - Depressed level of consciousness [Unknown]
  - Type 2 diabetes mellitus [Unknown]
  - Obesity [Not Recovered/Not Resolved]
  - Toxicity to various agents [Not Recovered/Not Resolved]
  - Hypertension [Unknown]
  - Confusional state [Unknown]
  - Somnolence [Unknown]
  - Wheezing [Unknown]
  - Mental disorder [Recovering/Resolving]
  - Disinhibition [Unknown]
  - Dyspnoea [Unknown]
  - Oxygen saturation decreased [Unknown]
  - Tachycardia [Unknown]
  - Asthma [Unknown]
  - Fall [Unknown]
